FAERS Safety Report 9969903 (Version 1)
Quarter: 2014Q1

REPORT INFORMATION
  Report Type: Spontaneous
  Country: US (occurrence: None)
  Receive Date: 20140131
  Receipt Date: 20140131
  Transmission Date: 20141002
  Serious: Yes (Hospitalization)
  Sender: FDA-Public Use
  Company Number: 091425

PATIENT
  Age: 49 Year
  Sex: Male
  Weight: 139 kg

DRUGS (4)
  1. KEPPRA [Suspect]
     Indication: CONVULSION
     Dosage: BID , STRENGTH : 1000 MG THERAPY DATES (OCT2012  TO NOT CONTINUING)? ??????????????????????????????
     Dates: start: 201210
  2. DEPAKOTE [Concomitant]
  3. TOPAMAX [Concomitant]
  4. LEVOTHYROXINE [Concomitant]

REACTIONS (1)
  - Petit mal epilepsy [None]
